FAERS Safety Report 8891233 (Version 1)
Quarter: 2012Q4

REPORT INFORMATION
  Report Type: 
  Country: GB (occurrence: GB)
  Receive Date: 20121107
  Receipt Date: 20121107
  Transmission Date: 20130627
  Serious: Yes (Life-Threatening, Hospitalization)
  Sender: FDA-Public Use
  Company Number: GB-BAYER-2012-116771

PATIENT
  Age: 71 Year
  Sex: Female

DRUGS (6)
  1. AVELOX [Suspect]
     Indication: NOCARDIA INFECTION
     Dosage: 400 mg, QD
     Route: 048
     Dates: start: 20121010, end: 20121015
  2. ATROVENT [Concomitant]
     Indication: CHRONIC OBSTRUCTIVE AIRWAYS DISEASE
     Dosage: 500 ?g, UNK
  3. CO-TRIMOXAZOLE [Concomitant]
     Indication: NOCARDIA INFECTION
     Dosage: 1440 mg, UNK
     Route: 048
     Dates: start: 20121010, end: 20121014
  4. FUROSEMIDE [Concomitant]
     Dosage: 20 mg, UNK
     Route: 048
  5. SALBUTAMOL [Concomitant]
     Indication: CHRONIC OBSTRUCTIVE AIRWAYS DISEASE
     Dosage: 2.5 mg, UNK
  6. TIOTROPIUM BROMIDE [Concomitant]
     Dosage: 18 ?g, UNK
     Route: 055
     Dates: start: 20121012

REACTIONS (2)
  - Hypoglycaemia [Not Recovered/Not Resolved]
  - Convulsion [Not Recovered/Not Resolved]
